FAERS Safety Report 15459052 (Version 1)
Quarter: 2018Q4

REPORT INFORMATION
  Report Type: Spontaneous
  Country: US (occurrence: US)
  Receive Date: 20181001
  Receipt Date: 20181001
  Transmission Date: 20190204
  Serious: Yes (Life-Threatening, Disabling)
  Sender: FDA-Public Use
  Company Number: None

PATIENT
  Age: 56 Year
  Sex: Female
  Weight: 45.36 kg

DRUGS (8)
  1. ZINC. [Concomitant]
     Active Substance: ZINC
  2. GEODON [Suspect]
     Active Substance: ZIPRASIDONE HYDROCHLORIDE\ZIPRASIDONE MESYLATE
  3. CALCIUM + D3 [Suspect]
     Active Substance: CALCIUM\CHOLECALCIFEROL
  4. KLONOPIN [Concomitant]
     Active Substance: CLONAZEPAM
  5. VITAMIN D2 [Concomitant]
     Active Substance: ERGOCALCIFEROL
  6. VITAMIN C [Suspect]
     Active Substance: ASCORBIC ACID
  7. CLONAZEPAM. [Suspect]
     Active Substance: CLONAZEPAM
  8. MULTIVITAMIN (WOMENS) [Concomitant]

REACTIONS (25)
  - Balance disorder [None]
  - Restlessness [None]
  - Dry skin [None]
  - Musculoskeletal disorder [None]
  - Thyroid cyst [None]
  - Panic disorder [None]
  - Anxiety [None]
  - Gait disturbance [None]
  - Chills [None]
  - Depression [None]
  - Vision blurred [None]
  - Cataract [None]
  - Musculoskeletal stiffness [None]
  - Dysphonia [None]
  - Product quality issue [None]
  - Rash [None]
  - Uterine leiomyoma [None]
  - Dysphagia [None]
  - Product formulation issue [None]
  - Hypersomnia [None]
  - Feeling hot [None]
  - Blood triglycerides increased [None]
  - Restless legs syndrome [None]
  - Mastication disorder [None]
  - Thyroid mass [None]

NARRATIVE: CASE EVENT DATE: 201805
